FAERS Safety Report 20705995 (Version 2)
Quarter: 2022Q2

REPORT INFORMATION
  Report Type: Report from Study
  Country: US (occurrence: US)
  Receive Date: 20220413
  Receipt Date: 20220502
  Transmission Date: 20220721
  Serious: Yes (Hospitalization, Other)
  Sender: FDA-Public Use
  Company Number: US-GSKCCFUS-Case-01348107_AE-78158

PATIENT
  Age: 76 Year
  Sex: Female

DRUGS (1)
  1. NIRAPARIB [Suspect]
     Active Substance: NIRAPARIB
     Indication: Product used for unknown indication
     Dosage: 200 MG, QD
     Dates: start: 20220329

REACTIONS (6)
  - Functional gastrointestinal disorder [Unknown]
  - Faecaloma [Unknown]
  - Proctalgia [Not Recovered/Not Resolved]
  - Confusional state [Unknown]
  - Haemoglobin decreased [Unknown]
  - Product dose omission issue [Unknown]

NARRATIVE: CASE EVENT DATE: 20220410
